FAERS Safety Report 5792028-4 (Version None)
Quarter: 2008Q2

REPORT INFORMATION
  Report Type: 
  Country: None (occurrence: None)
  Receive Date: 20080626
  Receipt Date: 20080611
  Transmission Date: 20081010
  Serious: Yes (Hospitalization)
  Sender: FDA-Public Use
  Company Number: PHBS2008US04887

PATIENT
  Age: 39 Year
  Sex: Female

DRUGS (16)
  1. OXCARBAZEPINE [Suspect]
     Indication: TRIGEMINAL NEURALGIA
     Dosage: 900 MG DAILY
     Route: 065
  2. OXCARBAZEPINE [Suspect]
     Dosage: 1200 MG DAILY
     Route: 065
  3. CARBAMAZEPINE [Suspect]
     Indication: TRIGEMINAL NEURALGIA
     Dosage: UNK,UNK
     Route: 065
  4. BACLOFEN [Suspect]
     Indication: TRIGEMINAL NEURALGIA
     Dosage: 10 MG DAILY
     Route: 065
  5. METHYLPREDNISOLONE [Suspect]
     Indication: TRIGEMINAL NEURALGIA
     Dosage: UNK, UNK
     Route: 065
  6. ACETAMINOPHEN [Suspect]
     Indication: TRIGEMINAL NEURALGIA
     Dosage: 325 MG
     Route: 065
  7. OXYCODONE HCL [Suspect]
     Indication: TRIGEMINAL NEURALGIA
     Dosage: 5 MG,UNK
     Route: 065
  8. DICHLORALPHENAZONE [Suspect]
     Indication: TRIGEMINAL NEURALGIA
     Dosage: 100 MG
     Route: 065
  9. ISOMETHEPTENE [Suspect]
     Indication: TRIGEMINAL NEURALGIA
     Dosage: 65 MG
     Route: 065
  10. FENTANYL-100 [Suspect]
     Indication: TRIGEMINAL NEURALGIA
     Dosage: UNK,UNK
     Route: 065
  11. MORPHINE [Suspect]
     Indication: TRIGEMINAL NEURALGIA
     Dosage: UNK, UNK
     Route: 042
  12. TOPIRAMATE [Suspect]
     Indication: TRIGEMINAL NEURALGIA
     Dosage: 200 MG DAILY
     Route: 065
  13. DULOXETINE [Suspect]
     Indication: TRIGEMINAL NEURALGIA
     Dosage: 60 MG DAILY
     Route: 065
  14. GABAPENTIN [Suspect]
     Indication: TRIGEMINAL NEURALGIA
     Dosage: UNK,UNK
     Route: 065
  15. STEROIDS NOS [Concomitant]
     Dosage: UNK,UNK
     Route: 065
  16. INTERFERON [Concomitant]
     Dosage: UNK,UNK
     Route: 065

REACTIONS (10)
  - CRANIAL NERVE OPERATION [None]
  - DEPRESSED LEVEL OF CONSCIOUSNESS [None]
  - FACIAL PAIN [None]
  - GASTROINTESTINAL DISORDER [None]
  - NERVE BLOCK [None]
  - PERIPHERAL NERVE DESTRUCTION [None]
  - RADIOTHERAPY TO BRAIN [None]
  - RASH [None]
  - TRIGEMINAL NERVE ABLATION [None]
  - TRIGEMINAL NERVE DISORDER [None]
